FAERS Safety Report 24287142 (Version 3)
Quarter: 2024Q4

REPORT INFORMATION
  Report Type: Spontaneous
  Country: US (occurrence: US)
  Receive Date: 20240905
  Receipt Date: 20241020
  Transmission Date: 20250114
  Serious: No
  Sender: SANOFI AVENTIS
  Company Number: US-SANOFI-02197873

PATIENT
  Age: 20 Year
  Sex: Male
  Weight: 66.82 kg

DRUGS (2)
  1. DUPIXENT [Suspect]
     Active Substance: DUPILUMAB
     Indication: Eosinophilic oesophagitis
     Dosage: 300 MG, 1X
     Dates: start: 20240810, end: 20240810
  2. DUPIXENT [Suspect]
     Active Substance: DUPILUMAB
     Dosage: 300 MG, QW
     Dates: start: 20240817

REACTIONS (7)
  - Pyrexia [Unknown]
  - Pain [Unknown]
  - Rash papular [Unknown]
  - Rash erythematous [Unknown]
  - Urticaria [Unknown]
  - Oropharyngeal pain [Unknown]
  - Arthralgia [Unknown]

NARRATIVE: CASE EVENT DATE: 20240801
